FAERS Safety Report 19706589 (Version 2)
Quarter: 2022Q3

REPORT INFORMATION
  Report Type: Spontaneous
  Country: CA (occurrence: CA)
  Receive Date: 20210817
  Receipt Date: 20220712
  Transmission Date: 20221026
  Serious: Yes (Other)
  Sender: FDA-Public Use
  Company Number: CA-GLAXOSMITHKLINE-CA2021AMR084043

PATIENT

DRUGS (5)
  1. BENLYSTA [Suspect]
     Active Substance: BELIMUMAB
     Indication: Systemic lupus erythematosus
     Dosage: 10 MG/KG
  2. PREDNISONE [Suspect]
     Active Substance: PREDNISONE
     Indication: Product used for unknown indication
     Dosage: 9 MG
  3. PREDNISONE [Suspect]
     Active Substance: PREDNISONE
     Dosage: 8 UNK
  4. PREDNISONE [Suspect]
     Active Substance: PREDNISONE
     Dosage: 7.5 UNK
  5. CELLCEPT [Suspect]
     Active Substance: MYCOPHENOLATE MOFETIL
     Indication: Product used for unknown indication
     Dosage: UNK

REACTIONS (3)
  - Hepatic cirrhosis [Unknown]
  - Biopsy liver [Unknown]
  - Hepatic steatosis [Unknown]

NARRATIVE: CASE EVENT DATE: 20210413
